FAERS Safety Report 7088137-2 (Version None)
Quarter: 2010Q4

REPORT INFORMATION
  Report Type: 
  Country: None (occurrence: None)
  Receive Date: 20101108
  Receipt Date: 20101101
  Transmission Date: 20110411
  Serious: Yes (Other)
  Sender: FDA-Public Use
  Company Number: US-B.I. PHARMACEUTICALS,INC./RIDGEFIELD-2010-BP-10607BP

PATIENT
  Age: 81 Year
  Sex: Male

DRUGS (3)
  1. CATAPRES-TTS-1 [Suspect]
     Indication: HYPERTENSION
     Dosage: 0.1 MG
     Route: 061
     Dates: start: 20070101
  2. NITROGLYCERIN [Concomitant]
     Indication: CHEST PAIN
  3. COENZYME Q10 [Concomitant]
     Indication: SUPPLEMENTATION THERAPY

REACTIONS (3)
  - CHEST PAIN [None]
  - DRUG INEFFECTIVE [None]
  - HYPERTENSION [None]
